FAERS Safety Report 5394684-1 (Version None)
Quarter: 2007Q3

REPORT INFORMATION
  Report Type: 
  Country: None (occurrence: None)
  Receive Date: 20070723
  Receipt Date: 20070712
  Transmission Date: 20080115
  Serious: Yes (Hospitalization, Other)
  Sender: FDA-Public Use
  Company Number: US-PFIZER INC-2007058009

PATIENT
  Sex: Female

DRUGS (2)
  1. CELEBREX [Suspect]
     Indication: ARTHRITIS
     Dates: start: 20030101, end: 20030101
  2. BEXTRA [Suspect]
     Indication: ARTHRITIS
     Dosage: DAILY DOSE:20MG
     Dates: start: 20030915, end: 20040601

REACTIONS (3)
  - CEREBROVASCULAR ACCIDENT [None]
  - RASH [None]
  - URTICARIA [None]
